FAERS Safety Report 14015137 (Version 1)
Quarter: 2017Q3

REPORT INFORMATION
  Report Type: Report from Study
  Country: US (occurrence: US)
  Receive Date: 20170927
  Receipt Date: 20170927
  Transmission Date: 20171128
  Serious: Yes (Hospitalization)
  Sender: FDA-Public Use
  Company Number: US-ROCHE-1994676

PATIENT
  Age: 47 Year
  Sex: Female
  Weight: 55.9 kg

DRUGS (28)
  1. TRASTUZUMAB. [Suspect]
     Active Substance: TRASTUZUMAB
     Dosage: MAINTENANCE DOSE?LAST DOSE PRIORO TO SAE: 16/AUG/2017
     Route: 042
  2. LORAZEPAM. [Concomitant]
     Active Substance: LORAZEPAM
  3. LOPERAMIDE [Concomitant]
     Active Substance: LOPERAMIDE
  4. CHLORHEXIDINE [Concomitant]
     Active Substance: CHLORHEXIDINE
  5. DOCUSATE SODIUM. [Concomitant]
     Active Substance: DOCUSATE SODIUM
  6. ACETAMINOFEN [Concomitant]
     Active Substance: ACETAMINOPHEN
  7. TRIAMCINOLON [Concomitant]
  8. CAPECITABINE. [Suspect]
     Active Substance: CAPECITABINE
     Indication: HER-2 POSITIVE BREAST CANCER
     Dosage: LAST DOSE PRIORO TO SAE: 30/AUG/2017
     Route: 048
     Dates: start: 20170615
  9. FAMOTIDINE. [Concomitant]
     Active Substance: FAMOTIDINE
  10. ARGININE [Concomitant]
     Active Substance: ARGININE
  11. LIDOCAINE. [Concomitant]
     Active Substance: LIDOCAINE
  12. BLINDED PLACEBO [Suspect]
     Active Substance: INVESTIGATIONAL PRODUCT
     Indication: HER-2 POSITIVE BREAST CANCER
     Dosage: LAST DOSE PRIORO TO SAE: 06/SEP/2017
     Route: 065
     Dates: start: 20170615
  13. VITAMIN D3 [Concomitant]
     Active Substance: CHOLECALCIFEROL
  14. SUMATRIPTAN. [Concomitant]
     Active Substance: SUMATRIPTAN
  15. CLINDAMYCIN. [Concomitant]
     Active Substance: CLINDAMYCIN
  16. HYDROCORTISON [Concomitant]
     Active Substance: HYDROCORTISONE
  17. VITAMIN E [Concomitant]
     Active Substance: .ALPHA.-TOCOPHEROL
  18. GLUTAMINE [Concomitant]
     Active Substance: GLUTAMINE
  19. MAGNESIUM CITRATE. [Concomitant]
     Active Substance: MAGNESIUM CITRATE
  20. CALCIUM CARBONATE. [Concomitant]
     Active Substance: CALCIUM CARBONATE
  21. VITAMIN K [Concomitant]
     Active Substance: PHYTONADIONE
  22. MELATONIN [Concomitant]
     Active Substance: MELATONIN
  23. TRASTUZUMAB. [Suspect]
     Active Substance: TRASTUZUMAB
     Indication: HER-2 POSITIVE BREAST CANCER
     Dosage: LOADING DOSE
     Route: 042
     Dates: start: 20170615
  24. ELETRIPTAN. [Concomitant]
     Active Substance: ELETRIPTAN
  25. ONDANSETRON [Concomitant]
     Active Substance: ONDANSETRON
  26. OMEGA 3 [Concomitant]
     Active Substance: OMEGA-3 FATTY ACIDS
  27. DIPHENHYDRAMINE. [Concomitant]
     Active Substance: DIPHENHYDRAMINE
  28. SARNA LOTION [Concomitant]

REACTIONS (3)
  - Colitis [Unknown]
  - Enteritis [Unknown]
  - Small intestinal obstruction [Unknown]

NARRATIVE: CASE EVENT DATE: 20170907
